FAERS Safety Report 18751481 (Version 2)
Quarter: 2021Q1

REPORT INFORMATION
  Report Type: Spontaneous
  Country: IL (occurrence: IL)
  Receive Date: 20210118
  Receipt Date: 20210122
  Transmission Date: 20210419
  Serious: Yes (Other)
  Sender: FDA-Public Use
  Company Number: IL-ROCHE-2745263

PATIENT
  Sex: Female

DRUGS (1)
  1. KADCYLA [Suspect]
     Active Substance: ADO-TRASTUZUMAB EMTANSINE
     Indication: BREAST CANCER METASTATIC
     Route: 042

REACTIONS (8)
  - Hypoaesthesia oral [Unknown]
  - Leiomyosarcoma [Unknown]
  - Gait disturbance [Unknown]
  - Visual impairment [Unknown]
  - Balance disorder [Unknown]
  - Dizziness [Unknown]
  - Dysarthria [Unknown]
  - Hypoaesthesia [Unknown]
